FAERS Safety Report 12212169 (Version 4)
Quarter: 2017Q4

REPORT INFORMATION
  Report Type: Report from Study
  Country: US (occurrence: US)
  Receive Date: 20160325
  Receipt Date: 20171221
  Transmission Date: 20180320
  Serious: Yes (Hospitalization)
  Sender: FDA-Public Use
  Company Number: US-ACTELION-A-US2016-133261

PATIENT
  Age: 74 Year
  Sex: Female

DRUGS (8)
  1. ADCIRCA [Concomitant]
     Active Substance: TADALAFIL
     Dosage: 20 MG, BID
     Dates: start: 20140707
  2. OPSUMIT [Suspect]
     Active Substance: MACITENTAN
     Indication: PULMONARY ARTERIAL HYPERTENSION
     Dosage: 10 MG, QD
     Route: 048
     Dates: start: 20140702
  3. FUROSEMIDE. [Concomitant]
     Active Substance: FUROSEMIDE
     Dosage: 40 MG, QD
     Route: 048
  4. ADCIRCA [Concomitant]
     Active Substance: TADALAFIL
     Dosage: 40 MG, QD
     Route: 048
  5. PREDNISONE. [Concomitant]
     Active Substance: PREDNISONE
     Dosage: 5 MG, QD
     Route: 048
  6. ORENITRAM [Suspect]
     Active Substance: TREPROSTINIL
     Dosage: 2.5 MG, TID
     Route: 048
     Dates: start: 201603
  7. ORENITRAM [Suspect]
     Active Substance: TREPROSTINIL
     Indication: PULMONARY ARTERIAL HYPERTENSION
     Dosage: 5 MG, TID
     Route: 048
     Dates: start: 20151210
  8. ORENITRAM [Suspect]
     Active Substance: TREPROSTINIL
     Dosage: 7 MG, TID
     Route: 048

REACTIONS (4)
  - Nausea [Recovered/Resolved]
  - Neuralgia [Unknown]
  - Vomiting [Recovered/Resolved]
  - Dyspnoea [Recovered/Resolved]

NARRATIVE: CASE EVENT DATE: 20160304
